FAERS Safety Report 22122806 (Version 4)
Quarter: 2023Q2

REPORT INFORMATION
  Report Type: Report from Study
  Country: US (occurrence: US)
  Receive Date: 20230322
  Receipt Date: 20230415
  Transmission Date: 20230722
  Serious: Yes (Hospitalization, Other)
  Sender: FDA-Public Use
  Company Number: US-ABBVIE-4697800

PATIENT
  Age: 50 Year
  Sex: Female
  Weight: 48.08 kg

DRUGS (4)
  1. CREON [Suspect]
     Active Substance: PANCRELIPASE AMYLASE\PANCRELIPASE LIPASE\PANCRELIPASE PROTEASE
     Indication: Diarrhoea
     Dosage: FORM STRENGTH: 36000 UNIT ?2 CAPSULES PER MEAL
     Route: 048
     Dates: start: 19830327
  2. CREON [Suspect]
     Active Substance: PANCRELIPASE AMYLASE\PANCRELIPASE LIPASE\PANCRELIPASE PROTEASE
     Indication: Diarrhoea
     Dosage: 2 CAPSULES PER MEAL
     Route: 048
     Dates: start: 20230201
  3. CALCITRIOL [Concomitant]
     Active Substance: CALCITRIOL
     Indication: Parathyroid disorder
  4. POTASSIUM [Concomitant]
     Active Substance: POTASSIUM
     Indication: Dehydration

REACTIONS (20)
  - Pancreatic cyst [Recovered/Resolved]
  - Dehydration [Not Recovered/Not Resolved]
  - Nephrolithiasis [Not Recovered/Not Resolved]
  - Blood electrolytes decreased [Not Recovered/Not Resolved]
  - Haematochezia [Not Recovered/Not Resolved]
  - Pancreatitis relapsing [Recovered/Resolved]
  - Cholelithiasis [Recovered/Resolved]
  - Pancreatolithiasis [Unknown]
  - Nausea [Recovered/Resolved]
  - Vomiting [Recovered/Resolved]
  - Back pain [Not Recovered/Not Resolved]
  - Abdominal pain [Recovered/Resolved]
  - Pyrexia [Recovered/Resolved]
  - Ischaemic skin ulcer [Not Recovered/Not Resolved]
  - Polyp [Not Recovered/Not Resolved]
  - Malabsorption [Not Recovered/Not Resolved]
  - Colitis [Not Recovered/Not Resolved]
  - Colon cancer [Not Recovered/Not Resolved]
  - Pancreatitis [Recovered/Resolved]
  - Diarrhoea [Not Recovered/Not Resolved]

NARRATIVE: CASE EVENT DATE: 20060202
